FAERS Safety Report 10789949 (Version 1)
Quarter: 2015Q1

REPORT INFORMATION
  Report Type: Spontaneous
  Country: US (occurrence: US)
  Receive Date: 20150212
  Receipt Date: 20150212
  Transmission Date: 20150721
  Serious: No
  Sender: FDA-Public Use
  Company Number: US-GLAXOSMITHKLINE-A1077758A

PATIENT

DRUGS (2)
  1. ADVAIR DISKUS [Suspect]
     Active Substance: FLUTICASONE PROPIONATE\SALMETEROL XINAFOATE
     Indication: PRODUCT USED FOR UNKNOWN INDICATION
     Dosage: 250/50 MCG, UNKNOWN DOSING (START DATE: 08SEP2011).500/50 MCG, UNKNOWN DOSING (START DATE: 30AP[...]
     Route: 065
     Dates: start: 20110908
  2. VENTOLIN [Suspect]
     Active Substance: ALBUTEROL SULFATE
     Indication: ASTHMA
     Dosage: 90 MCG. UNKNOWN DOSING.
     Route: 065
     Dates: start: 20110908

REACTIONS (2)
  - Drug dose omission [Unknown]
  - Incorrect dosage administered [Unknown]
